FAERS Safety Report 20755154 (Version 1)
Quarter: 2022Q2

REPORT INFORMATION
  Report Type: Spontaneous
  Country: ZA (occurrence: ZA)
  Receive Date: 20220427
  Receipt Date: 20220427
  Transmission Date: 20220721
  Serious: Yes (Hospitalization)
  Sender: FDA-Public Use
  Company Number: ZA-NOVOPROD-912023

PATIENT
  Age: 69 Year
  Sex: Female

DRUGS (4)
  1. NOVORAPID [Suspect]
     Active Substance: INSULIN ASPART
     Indication: Diabetes mellitus
     Dosage: 100 IU
     Route: 065
  2. LOSARTAN POTASSIUM [Concomitant]
     Active Substance: LOSARTAN POTASSIUM
     Indication: Hypertension
     Dosage: 50 MG
     Route: 048
  3. ROSUVASTATIN CALCIUM [Concomitant]
     Active Substance: ROSUVASTATIN CALCIUM
     Indication: Blood cholesterol abnormal
     Dosage: 40 MG
     Route: 048
  4. PANTOCID [MONALAZONE DISODIUM] [Concomitant]
     Indication: Ulcer
     Dosage: 40 MG
     Route: 048

REACTIONS (1)
  - Small intestinal obstruction [Unknown]
